FAERS Safety Report 6247974-4 (Version None)
Quarter: 2009Q2

REPORT INFORMATION
  Report Type: 
  Country: None (occurrence: None)
  Receive Date: 20090626
  Receipt Date: 20090622
  Transmission Date: 20091009
  Serious: Yes (Other)
  Sender: FDA-Public Use
  Company Number: CA-BAYER-200924337NA

PATIENT
  Age: 26 Year
  Sex: Male
  Weight: 79 kg

DRUGS (1)
  1. MAGNEVIST [Suspect]
     Indication: DRUG USE FOR UNKNOWN INDICATION
     Dosage: TOTAL DAILY DOSE: 15 ML
     Route: 042

REACTIONS (4)
  - FLUSHING [None]
  - HYPERHIDROSIS [None]
  - NAUSEA [None]
  - URTICARIA [None]
